FAERS Safety Report 4609774-8 (Version None)
Quarter: 2005Q1

REPORT INFORMATION
  Report Type: 
  Country: None (occurrence: None)
  Receive Date: 20050314
  Receipt Date: 20050314
  Transmission Date: 20050727
  Serious: Yes (Hospitalization)
  Sender: FDA-Public Use
  Company Number: None

PATIENT
  Age: 83 Year
  Sex: Male

DRUGS (5)
  1. DORZOLAMIDE [Suspect]
     Indication: GLAUCOMA
     Dosage: 1 DROP Q 12 H
     Dates: start: 20011201
  2. TIMOPTIC [Suspect]
     Indication: GLAUCOMA
     Dosage: 1 DROP Q 12 H
     Dates: start: 20011201
  3. TAMSULOSIN [Concomitant]
  4. ASPIRIN [Concomitant]
  5. NIFEDIPINE [Concomitant]

REACTIONS (2)
  - BRADYCARDIA [None]
  - SYNCOPE [None]
